FAERS Safety Report 6448223-4 (Version None)
Quarter: 2009Q4

REPORT INFORMATION
  Report Type: 
  Country: None (occurrence: None)
  Receive Date: 20091120
  Receipt Date: 20091106
  Transmission Date: 20100525
  Serious: Yes (Other)
  Sender: FDA-Public Use
  Company Number: US-TYCO HEALTHCARE/MALLINCKRODT-T200802104

PATIENT
  Sex: Female

DRUGS (8)
  1. THALLOUS CHLORIDE TL-201 [Suspect]
     Indication: CARDIAC STRESS TEST
     Dosage: UNK
     Route: 042
     Dates: start: 20081210, end: 20081210
  2. MYOVIEW [Suspect]
     Indication: CARDIAC STRESS TEST
     Dosage: UNK
     Route: 042
     Dates: start: 20081210, end: 20081210
  3. ULTRA-TECHNEKOW [Suspect]
     Indication: CARDIAC STRESS TEST
     Dosage: UNK
     Dates: start: 20081210, end: 20081210
  4. ASTELIN [Concomitant]
     Dosage: UNK
  5. OPTIVAR [Concomitant]
     Dosage: UNK
  6. BENADRYL [Concomitant]
     Indication: HYPERSENSITIVITY
     Dosage: 25 MG, EVERY 4 HRS
     Route: 048
     Dates: start: 20081210
  7. PREDNISON [Concomitant]
     Indication: HYPERSENSITIVITY
     Dosage: UNK, AS NEEDED
     Route: 030
     Dates: start: 20081210
  8. PREDNISON [Concomitant]
     Dosage: UNK, AS NEEDED
     Route: 048
     Dates: start: 20081210

REACTIONS (9)
  - ASTHMA [None]
  - BLISTER [None]
  - BURNING SENSATION [None]
  - HYPERHIDROSIS [None]
  - HYPERSENSITIVITY [None]
  - PARAESTHESIA ORAL [None]
  - PHARYNGEAL OEDEMA [None]
  - POLLAKIURIA [None]
  - THROAT TIGHTNESS [None]
